FAERS Safety Report 17183588 (Version 1)
Quarter: 2019Q4

REPORT INFORMATION
  Report Type: Spontaneous
  Country: US (occurrence: US)
  Receive Date: 20191220
  Receipt Date: 20191220
  Transmission Date: 20200122
  Serious: Yes (Hospitalization)
  Sender: FDA-Public Use
  Company Number: US-ACTELION-A-CH2019-199392

PATIENT
  Age: 35 Year
  Sex: Female

DRUGS (1)
  1. VELETRI [Suspect]
     Active Substance: EPOPROSTENOL
     Indication: PULMONARY ARTERIAL HYPERTENSION
     Dosage: UNK
     Route: 042

REACTIONS (11)
  - Dysphagia [Unknown]
  - Dyspnoea [Unknown]
  - Thyroid mass [Unknown]
  - Anti-thyroid antibody positive [Unknown]
  - Blood thyroid stimulating hormone decreased [Unknown]
  - Biopsy thyroid gland [Unknown]
  - Thyroglobulin increased [Unknown]
  - Oropharyngeal pain [Unknown]
  - Goitre [Unknown]
  - Autoimmune thyroiditis [Unknown]
  - Thyroidectomy [Unknown]
